FAERS Safety Report 7357371-6 (Version None)
Quarter: 2011Q1

REPORT INFORMATION
  Report Type: 
  Country: None (occurrence: None)
  Receive Date: 20110307
  Receipt Date: 20110223
  Transmission Date: 20110831
  Serious: Yes (Other)
  Sender: FDA-Public Use
  Company Number: 2011MA001813

PATIENT
  Age: 54 Year
  Sex: Female

DRUGS (4)
  1. LACTULOSE [Concomitant]
  2. MICONAZOLE [Concomitant]
  3. RANITIDINE [Suspect]
     Dates: start: 20110124
  4. LANSOPRAZOLE [Concomitant]

REACTIONS (1)
  - RASH PRURITIC [None]
